FAERS Safety Report 13819194 (Version 1)
Quarter: 2017Q3

REPORT INFORMATION
  Report Type: Report from Study
  Country: US (occurrence: US)
  Receive Date: 20170731
  Receipt Date: 20170731
  Transmission Date: 20171127
  Serious: No
  Sender: FDA-Public Use
  Company Number: US-EXELIXIS-CABO-17008609

PATIENT
  Sex: Male
  Weight: 97.51 kg

DRUGS (1)
  1. CABOMETYX [Suspect]
     Active Substance: CABOZANTINIB S-MALATE
     Indication: RENAL CANCER
     Dosage: 60 MG, QD
     Route: 048

REACTIONS (5)
  - Rash [Unknown]
  - Oropharyngeal pain [Unknown]
  - Platelet disorder [Unknown]
  - Stomatitis [Unknown]
  - Acne [Unknown]
